FAERS Safety Report 12111531 (Version 1)
Quarter: 2016Q1

REPORT INFORMATION
  Report Type: Spontaneous
  Country: DE (occurrence: DE)
  Receive Date: 20160224
  Receipt Date: 20160224
  Transmission Date: 20160526
  Serious: Yes (Hospitalization)
  Sender: FDA-Public Use
  Company Number: DE-MYLANLABS-2016M1007615

PATIENT

DRUGS (7)
  1. PREGABALIN. [Suspect]
     Active Substance: PREGABALIN
     Dosage: 2400MG/DAY
     Route: 048
  2. BUPROPION. [Suspect]
     Active Substance: BUPROPION
     Indication: DEPRESSION
     Dosage: 300MG FOR ABOUT 3-4 MONTHS, DOSE INCREASED TO 450MG/D
     Route: 048
  3. BUPROPION. [Suspect]
     Active Substance: BUPROPION
     Dosage: 2400 MG (8 X 300 MG TABLETS)
     Route: 042
  4. PREGABALIN. [Suspect]
     Active Substance: PREGABALIN
     Dosage: 3600MG/DAY
     Route: 048
  5. PREGABALIN. [Suspect]
     Active Substance: PREGABALIN
     Indication: DRUG ABUSE
     Dosage: 300MG DAILY
     Route: 065
  6. BUPROPION. [Suspect]
     Active Substance: BUPROPION
     Dosage: 450MG/D
     Route: 048
  7. RIVAROXABAN [Concomitant]
     Active Substance: RIVAROXABAN
     Route: 065

REACTIONS (13)
  - Distractibility [Recovering/Resolving]
  - Psychomotor hyperactivity [Recovering/Resolving]
  - Mood swings [Recovering/Resolving]
  - Restless legs syndrome [Recovering/Resolving]
  - Incoherent [Recovering/Resolving]
  - Drug withdrawal syndrome [Recovering/Resolving]
  - Drug dependence [Recovering/Resolving]
  - Incorrect route of drug administration [Unknown]
  - Delusion [Recovering/Resolving]
  - Intentional overdose [Recovering/Resolving]
  - Drug abuse [Recovering/Resolving]
  - Increased appetite [Unknown]
  - Feeling drunk [Recovering/Resolving]
